FAERS Safety Report 19018999 (Version 1)
Quarter: 2021Q1

REPORT INFORMATION
  Report Type: Spontaneous
  Country: US (occurrence: US)
  Receive Date: 20210317
  Receipt Date: 20210317
  Transmission Date: 20210420
  Serious: Yes (Hospitalization)
  Sender: FDA-Public Use
  Company Number: None

PATIENT
  Age: 70 Year
  Weight: 67.95 kg

DRUGS (17)
  1. IMODIUM A?D [Concomitant]
     Active Substance: LOPERAMIDE HYDROCHLORIDE
  2. ENTECAVIR. [Concomitant]
     Active Substance: ENTECAVIR
  3. NIFEDIPINE. [Concomitant]
     Active Substance: NIFEDIPINE
  4. CAPECITABINE. [Suspect]
     Active Substance: CAPECITABINE
     Indication: BREAST CANCER
     Route: 048
     Dates: start: 20210205, end: 20210312
  5. MULTIVITAMIN ADULTS [Concomitant]
  6. ANASTROZOLE. [Concomitant]
     Active Substance: ANASTROZOLE
  7. TUKYSA 150 MG [Concomitant]
  8. TUKYSA 50 MG TABLET [Concomitant]
  9. LISINOPRIL. [Concomitant]
     Active Substance: LISINOPRIL
  10. CALCIUM + VITAMIN D3 [Concomitant]
     Active Substance: CALCIUM\CHOLECALCIFEROL
  11. METFORMIN HCL [Concomitant]
     Active Substance: METFORMIN HYDROCHLORIDE
  12. OXYCODONE HYDROCHLORIDE. [Concomitant]
     Active Substance: OXYCODONE HYDROCHLORIDE
  13. LIDOCAINE. [Concomitant]
     Active Substance: LIDOCAINE
  14. ALBUTEROL SULFATE ER [Concomitant]
     Active Substance: ALBUTEROL SULFATE
  15. ATORVASTATIN CALCIUM. [Concomitant]
     Active Substance: ATORVASTATIN CALCIUM
  16. TYLENOL EXTRA STRENGTH [Concomitant]
     Active Substance: ACETAMINOPHEN
  17. CARVEDILOL. [Concomitant]
     Active Substance: CARVEDILOL

REACTIONS (1)
  - Hospitalisation [None]

NARRATIVE: CASE EVENT DATE: 20210312
